FAERS Safety Report 5945518-5 (Version None)
Quarter: 2008Q4

REPORT INFORMATION
  Report Type: 
  Country: None (occurrence: None)
  Receive Date: 20081107
  Receipt Date: 20081027
  Transmission Date: 20090506
  Serious: Yes (Hospitalization, Other)
  Sender: FDA-Public Use
  Company Number: CA-PFIZER INC-2008091077

PATIENT
  Age: 34 Year
  Sex: Female

DRUGS (6)
  1. LYRICA [Suspect]
     Indication: NEUROPATHY PERIPHERAL
     Route: 048
     Dates: start: 20080201
  2. LYRICA [Suspect]
     Indication: FIBROMYALGIA
  3. CYMBALTA [Concomitant]
  4. NEXIUM [Concomitant]
  5. OXYCODONE HCL [Concomitant]
  6. CESAMET [Concomitant]

REACTIONS (8)
  - ANXIETY [None]
  - COLITIS [None]
  - DEPRESSION [None]
  - GASTROINTESTINAL DISORDER [None]
  - GASTROINTESTINAL HAEMORRHAGE [None]
  - MEMORY IMPAIRMENT [None]
  - PNEUMONIA [None]
  - VOMITING [None]
